FAERS Safety Report 5123823-2 (Version None)
Quarter: 2006Q4

REPORT INFORMATION
  Report Type: 
  Country: None (occurrence: None)
  Receive Date: 20061010
  Receipt Date: 20060927
  Transmission Date: 20070319
  Serious: Yes (Other)
  Sender: FDA-Public Use
  Company Number: US-SP-2006-02541

PATIENT
  Age: 69 Year
  Sex: Male

DRUGS (1)
  1. BCG  THERAPEUTICS [Suspect]
     Indication: BLADDER CANCER
     Route: 043

REACTIONS (8)
  - DISCOMFORT [None]
  - ERYTHEMA [None]
  - GRANULOMA [None]
  - LYMPHADENOPATHY [None]
  - OEDEMA GENITAL [None]
  - PENILE ULCERATION [None]
  - RASH PAPULAR [None]
  - SKIN NODULE [None]
